FAERS Safety Report 4401334-7 (Version None)
Quarter: 2004Q3

REPORT INFORMATION
  Report Type: 
  Country: None (occurrence: None)
  Receive Date: 20040907
  Receipt Date: 20040315
  Transmission Date: 20050211
  Serious: No
  Sender: FDA-Public Use
  Company Number: US-BRISTOL-MYERS SQUIBB COMPANY-12533857

PATIENT
  Age: 72 Year
  Sex: Male
  Weight: 78 kg

DRUGS (3)
  1. COUMADIN [Suspect]
     Indication: HEART VALVE REPLACEMENT
     Dosage: ON VARYING DOSES
     Route: 048
     Dates: start: 19890101, end: 20040312
  2. HYDROCHLOROTHIAZIDE [Concomitant]
  3. TYLENOL [Concomitant]
     Indication: ARTHRALGIA
     Dosage: TAKING FOR A FEW WEEKS

REACTIONS (1)
  - PROTHROMBIN TIME PROLONGED [None]
